FAERS Safety Report 17019920 (Version 3)
Quarter: 2020Q1

REPORT INFORMATION
  Report Type: Report from Study
  Country: None (occurrence: US)
  Receive Date: 20191112
  Receipt Date: 20200210
  Transmission Date: 20200409
  Serious: Yes (Hospitalization, Other)
  Sender: FDA-Public Use
  Company Number: US-INSMED, INC.-US-INS-19-03611

PATIENT
  Sex: Female
  Weight: 57.16 kg

DRUGS (2)
  1. LAMIRA NEBULIZER SYSTEM [Suspect]
     Active Substance: DEVICE
  2. ARIKAYCE [Suspect]
     Active Substance: AMIKACIN
     Indication: MYCOBACTERIUM AVIUM COMPLEX INFECTION
     Route: 055
     Dates: start: 201904, end: 2019

REACTIONS (10)
  - Cardioversion [Unknown]
  - Fatigue [Recovering/Resolving]
  - Hospitalisation [Unknown]
  - Cardiac ablation [Unknown]
  - Pulmonary hypertension [Unknown]
  - Choking [Recovering/Resolving]
  - Asthenia [Recovering/Resolving]
  - Cough [Recovering/Resolving]
  - Respiratory distress [Unknown]
  - Influenza [Unknown]

NARRATIVE: CASE EVENT DATE: 2019
